FAERS Safety Report 8663149 (Version 2)
Quarter: 2013Q4

REPORT INFORMATION
  Report Type: Spontaneous
  Country: IE (occurrence: IE)
  Receive Date: 20120713
  Receipt Date: 20131105
  Transmission Date: 20140711
  Serious: Yes (Other)
  Sender: FDA-Public Use
  Company Number: IE-009507513-1207IRL001406

PATIENT
  Age: 80 Year
  Sex: Female
  Weight: 24.49 kg

DRUGS (7)
  1. FOSAVANCE [Suspect]
     Dosage: UNK UNK,
     Route: 048
     Dates: start: 200808, end: 200904
  2. FOSAVANCE [Suspect]
     Dosage: UNK UNK, QW
     Route: 048
     Dates: start: 200808, end: 200904
  3. PRAVASTATIN SODIUM [Concomitant]
     Indication: BLOOD CHOLESTEROL INCREASED
     Dosage: 20 MG, QD
     Dates: start: 200706
  4. CALCICHEW D3 FORTE [Concomitant]
     Indication: ROUTINE HEALTH MAINTENANCE
     Dosage: 1 DF, BID
     Dates: start: 200706
  5. FOLIC ACID [Concomitant]
     Indication: DEMENTIA
     Dosage: 5 MG, QD
     Dates: start: 200706
  6. NU-SEALS [Concomitant]
     Indication: ANTIPLATELET THERAPY
     Dosage: 75 MG, QD
     Dates: start: 200706
  7. ARCOXIA 60 MG FILM-COATED TABLETS [Concomitant]
     Dosage: UNK UNK, QD
     Dates: start: 200803, end: 200901

REACTIONS (4)
  - Spinal fusion surgery [Recovered/Resolved]
  - Pain in extremity [Recovered/Resolved]
  - Hip arthroplasty [Recovered/Resolved]
  - Back pain [Recovered/Resolved]
